FAERS Safety Report 17550192 (Version 3)
Quarter: 2020Q2

REPORT INFORMATION
  Report Type: Spontaneous
  Country: US (occurrence: US)
  Receive Date: 20200317
  Receipt Date: 20200602
  Transmission Date: 20200713
  Serious: No
  Sender: FDA-Public Use
  Company Number: US-PFIZER INC-2020113547

PATIENT
  Age: 65 Year
  Sex: Female
  Weight: 75.75 kg

DRUGS (1)
  1. ADVIL PM [Suspect]
     Active Substance: DIPHENHYDRAMINE CITRATE\IBUPROFEN
     Indication: SLEEP DISORDER
     Dosage: 200 MG, 1X/DAY [ONCE AT BED TIME]
     Route: 048

REACTIONS (5)
  - Pharyngeal hypoaesthesia [Unknown]
  - Hypoaesthesia oral [Unknown]
  - Dysphagia [Unknown]
  - Product taste abnormal [Unknown]
  - Hypersomnia [Unknown]
